FAERS Safety Report 18198774 (Version 2)
Quarter: 2020Q3

REPORT INFORMATION
  Report Type: Spontaneous
  Country: PL (occurrence: PL)
  Receive Date: 20200826
  Receipt Date: 20200902
  Transmission Date: 20201103
  Serious: Yes (Other)
  Sender: FDA-Public Use
  Company Number: PL-PFIZER INC-2020327600

PATIENT
  Age: 15 Year
  Sex: Male

DRUGS (6)
  1. IMMUNOGLOBULINS NOS [Concomitant]
     Active Substance: IMMUNE GLOBULIN NOS
     Indication: HAEMOPHAGOCYTIC LYMPHOHISTIOCYTOSIS
     Dosage: UNK
     Route: 042
     Dates: start: 201703
  2. PREDNISOLONE. [Suspect]
     Active Substance: PREDNISOLONE
     Indication: B PRECURSOR TYPE ACUTE LEUKAEMIA
     Dosage: UNK, CYCLIC (INDUCTION THERAPY ONCE PER WEEK WITH FOUR TOTAL DOSES)
  3. ETOPOSIDE. [Concomitant]
     Active Substance: ETOPOSIDE
     Indication: HAEMOPHAGOCYTIC LYMPHOHISTIOCYTOSIS
     Dosage: UNK
     Dates: start: 201703
  4. VINBLASTINE [Concomitant]
     Active Substance: VINBLASTINE
     Indication: HAEMOPHAGOCYTIC LYMPHOHISTIOCYTOSIS
     Dosage: UNK
     Dates: start: 201703
  5. METHYLPREDNISOLONE. [Suspect]
     Active Substance: METHYLPREDNISOLONE
     Indication: HAEMOPHAGOCYTIC LYMPHOHISTIOCYTOSIS
     Dosage: UNK, CYCLIC
     Dates: start: 201703
  6. PREDNISONE. [Suspect]
     Active Substance: PREDNISONE
     Indication: B PRECURSOR TYPE ACUTE LEUKAEMIA
     Dosage: UNK (CYTOREDUCTIVE PREDNISONE PROPHASE)
     Dates: start: 201612

REACTIONS (4)
  - Adrenal insufficiency [Unknown]
  - Hypertension [Unknown]
  - Drug ineffective [Unknown]
  - Steroid diabetes [Unknown]

NARRATIVE: CASE EVENT DATE: 2017
